FAERS Safety Report 16924193 (Version 2)
Quarter: 2020Q1

REPORT INFORMATION
  Report Type: Spontaneous
  Country: US (occurrence: US)
  Receive Date: 20191016
  Receipt Date: 20200109
  Transmission Date: 20200409
  Serious: Yes (Other)
  Sender: FDA-Public Use
  Company Number: US-AMERICAN REGENT INC-2019002221

PATIENT
  Age: 35 Year
  Sex: Female
  Weight: 77.3 kg

DRUGS (4)
  1. TESTOSTERONE CYPIONATE INJECTION (0517-1830-01) [Suspect]
     Active Substance: TESTOSTERONE CYPIONATE
     Indication: TRANSGENDER HORMONAL THERAPY
     Dosage: 150 MILLIGRAM EVERY 2 WEEKS
     Route: 030
  2. TESTOSTERONE CYPIONATE INJECTION (0517-1830-01) [Suspect]
     Active Substance: TESTOSTERONE CYPIONATE
     Dosage: 100 MILLIGRAM EVERY 2 WEEKS
     Route: 030
  3. TESTOSTERONE CYPIONATE INJECTION (0517-1830-01) [Suspect]
     Active Substance: TESTOSTERONE CYPIONATE
     Dosage: 50 MILLIGRAM WEEKLY
     Route: 030
  4. TESTOSTERONE. [Suspect]
     Active Substance: TESTOSTERONE
     Indication: TRANSGENDER HORMONAL THERAPY
     Dosage: 100 MILLIGRAM EVERY 2 WEEKS
     Route: 030

REACTIONS (4)
  - Drug ineffective for unapproved indication [Recovered/Resolved]
  - Acne [Unknown]
  - Hot flush [Recovered/Resolved]
  - Product use issue [Unknown]
